FAERS Safety Report 15498440 (Version 2)
Quarter: 2022Q1

REPORT INFORMATION
  Report Type: Report from Study
  Country: CA (occurrence: CA)
  Receive Date: 20181015
  Receipt Date: 20220122
  Transmission Date: 20220424
  Serious: Yes (Other)
  Sender: FDA-Public Use
  Company Number: PHHY2018CA003038

PATIENT
  Age: 43 Year
  Sex: Female

DRUGS (11)
  1. AFINITOR [Suspect]
     Active Substance: EVEROLIMUS
     Indication: Angiomyolipoma
     Dosage: 10 MG, QD
     Route: 048
     Dates: start: 201612
  2. AFINITOR [Suspect]
     Active Substance: EVEROLIMUS
     Dosage: 7.5 MG, QD
     Route: 048
     Dates: start: 20180613
  3. CARBAMAZEPINE [Concomitant]
     Active Substance: CARBAMAZEPINE
     Indication: Product used for unknown indication
     Route: 065
  4. CLOBAZAM [Concomitant]
     Active Substance: CLOBAZAM
     Indication: Product used for unknown indication
     Route: 065
  5. ESTRADIOL [Concomitant]
     Active Substance: ESTRADIOL
     Indication: Product used for unknown indication
     Route: 065
  6. FERROUS SULFATE [Concomitant]
     Active Substance: FERROUS SULFATE
     Indication: Product used for unknown indication
     Route: 065
  7. FOLIC ACID [Concomitant]
     Active Substance: FOLIC ACID
     Indication: Product used for unknown indication
     Dosage: UNK
     Route: 065
  8. LEVOTHYROXINE [Concomitant]
     Active Substance: LEVOTHYROXINE
     Indication: Product used for unknown indication
     Route: 065
  9. PANTOPRAZOLE [Concomitant]
     Active Substance: PANTOPRAZOLE
     Indication: Product used for unknown indication
     Route: 065
  10. SERTRALINE [Concomitant]
     Active Substance: SERTRALINE HYDROCHLORIDE
     Indication: Product used for unknown indication
     Route: 065
  11. IBUPROFEN [Concomitant]
     Active Substance: IBUPROFEN
     Indication: Product used for unknown indication
     Route: 065

REACTIONS (22)
  - Blood magnesium decreased [Unknown]
  - Blood sodium decreased [Unknown]
  - Swelling [Recovered/Resolved]
  - Pain [Unknown]
  - Menopausal symptoms [Unknown]
  - Fatigue [Recovered/Resolved]
  - Pyrexia [Recovered/Resolved]
  - Chills [Recovered/Resolved]
  - Abdominal distension [Unknown]
  - Feeling abnormal [Unknown]
  - Dyslipidaemia [Unknown]
  - Blood cholesterol increased [Unknown]
  - Nasopharyngitis [Unknown]
  - Memory impairment [Unknown]
  - Headache [Unknown]
  - Rash [Unknown]
  - Nausea [Recovered/Resolved]
  - Neutrophil count decreased [Unknown]
  - Weight decreased [Unknown]
  - Diarrhoea [Recovered/Resolved]
  - Fatigue [Recovered/Resolved]
  - Product dose omission issue [Unknown]

NARRATIVE: CASE EVENT DATE: 20220101
